FAERS Safety Report 16218345 (Version 3)
Quarter: 2020Q1

REPORT INFORMATION
  Report Type: Report from Study
  Country: US (occurrence: US)
  Receive Date: 20190419
  Receipt Date: 20200116
  Transmission Date: 20200409
  Serious: No
  Sender: FDA-Public Use
  Company Number: PHEH2019US016967

PATIENT
  Sex: Female

DRUGS (3)
  1. ILARIS [Suspect]
     Active Substance: CANAKINUMAB
     Dosage: 450 MG
     Route: 058
     Dates: start: 20191211
  2. ILARIS [Suspect]
     Active Substance: CANAKINUMAB
     Dosage: 450 MG
     Route: 058
     Dates: start: 20191120
  3. ILARIS [Suspect]
     Active Substance: CANAKINUMAB
     Indication: CRYOPYRIN ASSOCIATED PERIODIC SYNDROME
     Dosage: 475 MG, Q4W
     Route: 058
     Dates: start: 20160319

REACTIONS (2)
  - Inappropriate schedule of product administration [Unknown]
  - Product administration error [Unknown]
